FAERS Safety Report 25478577 (Version 2)
Quarter: 2025Q4

REPORT INFORMATION
  Report Type: Spontaneous
  Country: US (occurrence: US)
  Receive Date: 20250625
  Receipt Date: 20251001
  Transmission Date: 20260117
  Serious: No
  Sender: ITALFARMACO SPA
  Company Number: US-ITALFARMACO SPA-2179348

PATIENT
  Age: 10 Year
  Sex: Male
  Weight: 43.06 kg

DRUGS (5)
  1. DUVYZAT [Suspect]
     Active Substance: GIVINOSTAT
     Indication: Duchenne muscular dystrophy
     Dates: start: 20250423
  2. AGAMREE [Concomitant]
     Active Substance: VAMOROLONE
  3. VITAMIN D [Concomitant]
     Active Substance: VITAMIN D NOS
  4. ENALAPRIL MALEATE [Concomitant]
     Active Substance: ENALAPRIL MALEATE
  5. METFORMIN [Concomitant]
     Active Substance: METFORMIN HYDROCHLORIDE

REACTIONS (3)
  - Abdominal pain [Recovering/Resolving]
  - Platelet count decreased [Unknown]
  - Gastrointestinal disorder [Not Recovered/Not Resolved]
